FAERS Safety Report 22006989 (Version 1)
Quarter: 2023Q1

REPORT INFORMATION
  Report Type: Spontaneous
  Country: US (occurrence: US)
  Receive Date: 20230217
  Receipt Date: 20230217
  Transmission Date: 20230417
  Serious: No
  Sender: FDA-Public Use
  Company Number: US-PFIZER INC-PV202300031567

PATIENT
  Age: 43 Year
  Sex: Female

DRUGS (1)
  1. NURTEC ODT [Suspect]
     Active Substance: RIMEGEPANT SULFATE
     Indication: Migraine
     Dosage: ON OR UNDER THE TONGUE, MAX 1 TABLET PER DAY
     Route: 048

REACTIONS (1)
  - Somnolence [Not Recovered/Not Resolved]
